FAERS Safety Report 6937099-4 (Version None)
Quarter: 2010Q3

REPORT INFORMATION
  Report Type: 
  Country: None (occurrence: None)
  Receive Date: 20100817
  Receipt Date: 20100805
  Transmission Date: 20110219
  Serious: Yes (Hospitalization)
  Sender: FDA-Public Use
  Company Number: 2010S1000693

PATIENT
  Age: 65 Year
  Sex: Male
  Weight: 50 kg

DRUGS (7)
  1. LIVALO [Suspect]
     Indication: HYPERCHOLESTEROLAEMIA
     Dosage: 1 MG;1X;PO; 1 MG;1X;PO
     Route: 048
     Dates: start: 20050228, end: 20090304
  2. LIVALO [Suspect]
     Indication: HYPERCHOLESTEROLAEMIA
     Dosage: 1 MG;1X;PO; 1 MG;1X;PO
     Route: 048
     Dates: start: 20090305, end: 20090817
  3. EPADEL-S (CON.) [Concomitant]
  4. BASEN (CON.) [Concomitant]
  5. AMARYL (CON.) [Concomitant]
  6. MEDET (CON.) [Concomitant]
  7. ACTOS /01460202/ (CON.) [Concomitant]

REACTIONS (4)
  - BLOOD CREATINE PHOSPHOKINASE INCREASED [None]
  - DIZZINESS [None]
  - FALL [None]
  - PYREXIA [None]
